FAERS Safety Report 4462943-2 (Version None)
Quarter: 2004Q3

REPORT INFORMATION
  Report Type: 
  Country: None (occurrence: None)
  Receive Date: 20040927
  Receipt Date: 20040913
  Transmission Date: 20050211
  Serious: Yes (Hospitalization)
  Sender: FDA-Public Use
  Company Number: 2004-BP-08102NB

PATIENT
  Age: 78 Year
  Sex: Male

DRUGS (4)
  1. MICARDIS [Suspect]
     Dosage: 100 MG
     Route: 048
     Dates: start: 20040901, end: 20040901
  2. NEODOPASTON (TA) [Suspect]
     Indication: PARKINSON'S DISEASE
     Route: 048
     Dates: start: 20040901
  3. SYMMETREL [Suspect]
     Indication: PARKINSON'S DISEASE
     Dosage: 40 MG
     Route: 048
     Dates: start: 20040901
  4. PANTOSIN (PANTETHINE) [Suspect]
     Indication: CONSTIPATION
     Dosage: PO
     Route: 048

REACTIONS (4)
  - ALANINE AMINOTRANSFERASE INCREASED [None]
  - ASPARTATE AMINOTRANSFERASE INCREASED [None]
  - BLOOD LACTATE DEHYDROGENASE INCREASED [None]
  - LIVER DISORDER [None]
